FAERS Safety Report 7989812-5 (Version None)
Quarter: 2011Q4

REPORT INFORMATION
  Report Type: 
  Country: None (occurrence: None)
  Receive Date: 20111219
  Receipt Date: 20111010
  Transmission Date: 20120403
  Serious: No
  Sender: FDA-Public Use
  Company Number: US-ASTRAZENECA-2011SE61076

PATIENT
  Sex: Male

DRUGS (2)
  1. CRESTOR [Suspect]
     Route: 048
  2. CRESTOR [Suspect]
     Route: 048

REACTIONS (7)
  - DYSPNOEA EXERTIONAL [None]
  - ARTERIOSCLEROSIS [None]
  - RHINITIS ALLERGIC [None]
  - LIPIDS INCREASED [None]
  - SEASONAL ALLERGY [None]
  - CHRONIC OBSTRUCTIVE PULMONARY DISEASE [None]
  - HYPOTHYROIDISM [None]
